FAERS Safety Report 9781568 (Version 1)
Quarter: 2013Q4

REPORT INFORMATION
  Report Type: Spontaneous
  Country: US (occurrence: None)
  Receive Date: 20131223
  Receipt Date: 20131223
  Transmission Date: 20140711
  Serious: Yes (Hospitalization)
  Sender: FDA-Public Use
  Company Number: None

PATIENT
  Age: 64 Year
  Sex: Male

DRUGS (2)
  1. GABAPENTIN [Suspect]
     Indication: NEUROPATHY PERIPHERAL
     Route: 048
     Dates: start: 20130319, end: 20130805
  2. DIVALPROEX [Suspect]
     Indication: SCHIZOAFFECTIVE DISORDER
     Dosage: 5 TAB, HS, PO
     Route: 048
     Dates: start: 20091229

REACTIONS (6)
  - Agitation [None]
  - Hyponatraemia [None]
  - Paranoia [None]
  - Aggression [None]
  - Schizoaffective disorder [None]
  - Condition aggravated [None]
